FAERS Safety Report 5018313-1 (Version None)
Quarter: 2006Q2

REPORT INFORMATION
  Report Type: 
  Country: None (occurrence: None)
  Receive Date: 20060530
  Receipt Date: 20060519
  Transmission Date: 20061013
  Serious: Yes (Life-Threatening, Hospitalization, Other)
  Sender: FDA-Public Use
  Company Number: 2006-05-1499

PATIENT
  Age: 66 Year
  Sex: Male

DRUGS (6)
  1. TEMODAL [Suspect]
     Indication: GLIOBLASTOMA
     Dosage: 120 MG QD ORAL
     Route: 048
     Dates: start: 20060315, end: 20060420
  2. BACTRIM [Concomitant]
  3. VALPROATE SODIUM [Concomitant]
  4. DEXAMETHASONE TAB [Concomitant]
  5. CITALOPRAM HYDROBROMIDE [Concomitant]
  6. ZANTAC [Concomitant]

REACTIONS (3)
  - FEBRILE NEUTROPENIA [None]
  - SEPSIS [None]
  - THROMBOCYTOPENIA [None]
